FAERS Safety Report 15730577 (Version 1)
Quarter: 2018Q4

REPORT INFORMATION
  Report Type: Spontaneous
  Country: GB (occurrence: GB)
  Receive Date: 20181217
  Receipt Date: 20181217
  Transmission Date: 20190205
  Serious: Yes (Life-Threatening)
  Sender: FDA-Public Use
  Company Number: GB-PFIZER INC-2018516741

PATIENT
  Age: 37 Year
  Sex: Male

DRUGS (1)
  1. DOXORUBICIN [Suspect]
     Active Substance: DOXORUBICIN
     Indication: MYXOID LIPOSARCOMA
     Dosage: 75 MG/M2, CYCLIC (MONOTHERAPY, EVERY 4 WEEKS INSTEAD OF EVERY 3 WEEKS, COMPLETED SIX CYCLES)
     Dates: start: 201304, end: 201307

REACTIONS (1)
  - Neutropenia [Unknown]

NARRATIVE: CASE EVENT DATE: 2013
